FAERS Safety Report 17807229 (Version 1)
Quarter: 2020Q2

REPORT INFORMATION
  Report Type: Spontaneous
  Country: CZ (occurrence: CZ)
  Receive Date: 20200520
  Receipt Date: 20200520
  Transmission Date: 20200714
  Serious: Yes (Other)
  Sender: FDA-Public Use
  Company Number: CZ-MYLANLABS-2020M1048650

PATIENT
  Age: 77 Year

DRUGS (2)
  1. PREGABALIN. [Suspect]
     Active Substance: PREGABALIN
     Indication: MAJOR DEPRESSION
     Dosage: 150 MILLIGRAM, QD (75 MG, 2X/DAY)
  2. PREGABALIN. [Suspect]
     Active Substance: PREGABALIN
     Indication: ANXIETY

REACTIONS (3)
  - Dyspnoea [Unknown]
  - Ejection fraction decreased [Unknown]
  - Arrhythmia [Unknown]
